FAERS Safety Report 16918067 (Version 1)
Quarter: 2019Q4

REPORT INFORMATION
  Report Type: Spontaneous
  Country: JP (occurrence: JP)
  Receive Date: 20191015
  Receipt Date: 20191015
  Transmission Date: 20200122
  Serious: Yes (Other)
  Sender: FDA-Public Use
  Company Number: JP-SA-2019SA284191

PATIENT
  Age: 79 Year
  Sex: Female

DRUGS (2)
  1. IRBESARTAN. [Suspect]
     Active Substance: IRBESARTAN
     Dosage: 100 MG, QD
     Route: 065
  2. IRBESARTAN. [Suspect]
     Active Substance: IRBESARTAN
     Dosage: 100 MG, QD
     Route: 048

REACTIONS (6)
  - Intentional product misuse [Unknown]
  - Neoplasm malignant [Unknown]
  - Pruritus [Recovered/Resolved]
  - Palpitations [Unknown]
  - Dizziness [Unknown]
  - Anaemia [Unknown]
